FAERS Safety Report 4984216-1 (Version None)
Quarter: 2006Q2

REPORT INFORMATION
  Report Type: 
  Country: None (occurrence: None)
  Receive Date: 20060420
  Receipt Date: 20060412
  Transmission Date: 20061013
  Serious: Yes (Hospitalization, Other)
  Sender: FDA-Public Use
  Company Number: 2006046426

PATIENT
  Sex: Female

DRUGS (4)
  1. LYRICA [Suspect]
     Indication: EPILEPSY
     Dosage: ORAL
     Route: 048
  2. GABAPENTIN [Suspect]
     Indication: ILL-DEFINED DISORDER
     Dosage: ORAL
     Route: 048
  3. CARBAMAZEPINE [Suspect]
     Indication: EPILEPSY
     Dosage: ORAL
     Route: 048
  4. ANTIEPILEPTICS (ANTIEPILEPTICS) [Concomitant]

REACTIONS (4)
  - COMPLEX PARTIAL SEIZURES [None]
  - CONVULSION [None]
  - PORPHYRIA [None]
  - SKIN REACTION [None]
